FAERS Safety Report 25888222 (Version 2)
Quarter: 2025Q4

REPORT INFORMATION
  Report Type: Report from Study
  Country: IL (occurrence: IL)
  Receive Date: 20251007
  Receipt Date: 20251129
  Transmission Date: 20260117
  Serious: No
  Sender: SANOFI AVENTIS
  Company Number: IL-SA-2025SA296094

PATIENT
  Age: 95 Year
  Sex: Female

DRUGS (1)
  1. DUPILUMAB [Suspect]
     Active Substance: DUPILUMAB
     Indication: Chronic rhinosinusitis with nasal polyps
     Dosage: 300 MG, QOW
     Route: 058
     Dates: start: 20240310

REACTIONS (2)
  - Stridor [Not Recovered/Not Resolved]
  - Psoriasis [Not Recovered/Not Resolved]

NARRATIVE: CASE EVENT DATE: 20250601
